FAERS Safety Report 6251409-5 (Version None)
Quarter: 2009Q2

REPORT INFORMATION
  Report Type: 
  Country: None (occurrence: None)
  Receive Date: 20090630
  Receipt Date: 20090625
  Transmission Date: 20091009
  Serious: Yes (Death, Hospitalization)
  Sender: FDA-Public Use
  Company Number: FR-ROCHE-634256

PATIENT
  Sex: Female

DRUGS (6)
  1. CAPECITABINE [Suspect]
     Dosage: DURATION: 18 WEEKS 2 DAYS
     Route: 048
     Dates: start: 20081231
  2. BEVACIZUMAB [Suspect]
     Dosage: DURATION: 12 WEEKS 2 DAYS
     Route: 041
     Dates: start: 20090211
  3. OXALIPLATIN [Suspect]
     Dosage: DURATION: 18 WEEKS 2 DAYS
     Route: 041
     Dates: start: 20081231
  4. BLINDED AVE5026 [Concomitant]
     Dates: start: 20081231, end: 20090210
  5. BLINDED AVE5026 [Concomitant]
     Dates: start: 20090212, end: 20090318
  6. KYTRIL [Concomitant]
     Indication: PROPHYLAXIS
     Dates: start: 20090113, end: 20090116

REACTIONS (2)
  - ACUTE HEPATIC FAILURE [None]
  - DEEP VEIN THROMBOSIS [None]
